FAERS Safety Report 9372386 (Version 2)
Quarter: 2013Q3

REPORT INFORMATION
  Report Type: Spontaneous
  Country: JP (occurrence: None)
  Receive Date: 20130625
  Receipt Date: 20130708
  Transmission Date: 20140515
  Serious: Yes (Other)
  Sender: FDA-Public Use
  Company Number: JP-20130059

PATIENT
  Age: 6 Decade
  Sex: Female

DRUGS (4)
  1. LIPIODOL ULTRA FLUIDE (ETHIODIZED OIL), UNKNOWN [Suspect]
     Indication: ARTERIAL DISORDER
     Dosage: UNK (1 IN 1)
     Route: 013
  2. CISPLATIN (CISPLATIN) (CISPLATIN) [Concomitant]
  3. EPIRUBICIN (EPIRUBICIN) (EPIRUBICIN) [Concomitant]
  4. FLUOROURACIL (FLUOROURACIL) (FLUOROURACIL) [Concomitant]

REACTIONS (7)
  - Abdominal pain [None]
  - Defaecation urgency [None]
  - Blood pressure decreased [None]
  - Wheezing [None]
  - Oxygen saturation decreased [None]
  - Anaphylactic reaction [None]
  - Off label use [None]
